FAERS Safety Report 18094477 (Version 1)
Quarter: 2020Q3

REPORT INFORMATION
  Report Type: Spontaneous
  Country: GB (occurrence: GB)
  Receive Date: 20200731
  Receipt Date: 20200731
  Transmission Date: 20201103
  Serious: Yes (Life-Threatening)
  Sender: FDA-Public Use
  Company Number: GB-B.I. PHARMACEUTICALS,INC./RIDGEFIELD-2020-12-038419

PATIENT
  Age: 67 Year
  Sex: Female
  Weight: 68.9 kg

DRUGS (1)
  1. JARDIANCE [Suspect]
     Active Substance: EMPAGLIFLOZIN
     Indication: TYPE 2 DIABETES MELLITUS
     Route: 048
     Dates: start: 20200327, end: 20200707

REACTIONS (7)
  - Abdominal pain lower [Unknown]
  - Pollakiuria [Unknown]
  - Systemic candida [Recovering/Resolving]
  - Vulvovaginal pruritus [Unknown]
  - Vulvovaginal discomfort [Unknown]
  - Dysuria [Unknown]
  - Vomiting [Unknown]

NARRATIVE: CASE EVENT DATE: 20200707
